FAERS Safety Report 15555459 (Version 1)
Quarter: 2018Q4

REPORT INFORMATION
  Report Type: Report from Study
  Country: GB (occurrence: GB)
  Receive Date: 20181026
  Receipt Date: 20181026
  Transmission Date: 20190205
  Serious: Yes (Other)
  Sender: FDA-Public Use
  Company Number: GB-MYLANLABS-2018M1078743

PATIENT
  Sex: Female

DRUGS (3)
  1. CARBOPLATIN. [Suspect]
     Active Substance: CARBOPLATIN
     Indication: RETINOBLASTOMA
     Dosage: ADMINISTERED AT INTERVALS OF THREE WEEKS
     Route: 042
  2. ETOPOSIDE. [Suspect]
     Active Substance: ETOPOSIDE
     Indication: RETINOBLASTOMA
     Dosage: ADMINISTERED AT INTERVALS OF THREE WEEKS
     Route: 042
  3. VINCRISTINE [Suspect]
     Active Substance: VINCRISTINE
     Indication: RETINOBLASTOMA
     Dosage: ADMINISTERED AT INTERVALS OF THREE WEEKS
     Route: 042

REACTIONS (2)
  - Unmasking of previously unidentified disease [Not Recovered/Not Resolved]
  - Retinoblastoma [Not Recovered/Not Resolved]
